FAERS Safety Report 6927798-2 (Version None)
Quarter: 2010Q3

REPORT INFORMATION
  Report Type: 
  Country: None (occurrence: None)
  Receive Date: 20100817
  Receipt Date: 20100803
  Transmission Date: 20110219
  Serious: Yes (Other)
  Sender: FDA-Public Use
  Company Number: DE-PFIZER INC-2010101523

PATIENT
  Age: 48 Year
  Sex: Male

DRUGS (1)
  1. ZYVOX [Suspect]
     Indication: STAPHYLOCOCCAL INFECTION
     Dosage: 600 MG (DAILY DOSE UNKNOWN)
     Route: 048

REACTIONS (3)
  - NAUSEA [None]
  - SWOLLEN TONGUE [None]
  - TREMOR [None]
